FAERS Safety Report 7999106-X (Version None)
Quarter: 2011Q4

REPORT INFORMATION
  Report Type: 
  Country: None (occurrence: None)
  Receive Date: 20111221
  Receipt Date: 20111212
  Transmission Date: 20120403
  Serious: Yes (Other)
  Sender: FDA-Public Use
  Company Number: DE-BRISTOL-MYERS SQUIBB COMPANY-15873748

PATIENT
  Age: 52 Year
  Sex: Male
  Weight: 63 kg

DRUGS (1)
  1. ORENCIA [Suspect]
     Indication: RHEUMATOID ARTHRITIS
     Dosage: LAST INF ON 19JAN11, FEB11. NO OF INF-6. LAST INFUSION: 9NOV11
     Route: 042
     Dates: start: 20101025

REACTIONS (2)
  - SINUS BRADYCARDIA [None]
  - BUNDLE BRANCH BLOCK RIGHT [None]
